FAERS Safety Report 6802254-0 (Version None)
Quarter: 2010Q2

REPORT INFORMATION
  Report Type: 
  Country: None (occurrence: None)
  Receive Date: 20100628
  Receipt Date: 20100624
  Transmission Date: 20101027
  Serious: Yes (Other)
  Sender: FDA-Public Use
  Company Number: US-BIOGENIDEC-2010BI020967

PATIENT
  Age: 46 Year
  Sex: Female

DRUGS (11)
  1. TYSABRI [Suspect]
     Indication: MULTIPLE SCLEROSIS
     Route: 042
     Dates: start: 20080807
  2. NEURONTIN [Concomitant]
  3. TIZANIDINE [Concomitant]
  4. BACLOFEN [Concomitant]
  5. DILAUDID [Concomitant]
  6. FENTORA [Concomitant]
  7. OXYCONTIN [Concomitant]
  8. VALIUM [Concomitant]
  9. CYMBALTA [Concomitant]
  10. RITALIN [Concomitant]
  11. ZONEGRAN [Concomitant]

REACTIONS (1)
  - CONVULSION [None]
